FAERS Safety Report 14856063 (Version 1)
Quarter: 2018Q2

REPORT INFORMATION
  Report Type: Spontaneous
  Country: CH (occurrence: CH)
  Receive Date: 20180507
  Receipt Date: 20180507
  Transmission Date: 20180711
  Serious: Yes (Other)
  Sender: FDA-Public Use
  Company Number: CH-GILEAD-2018-0331894

PATIENT
  Age: 47 Year
  Sex: Female

DRUGS (1)
  1. HARVONI [Suspect]
     Active Substance: LEDIPASVIR\SOFOSBUVIR
     Indication: CHRONIC HEPATITIS C
     Dosage: UNK
     Route: 065
     Dates: start: 201708, end: 201710

REACTIONS (3)
  - Drug ineffective [Unknown]
  - Genotype drug resistance test positive [Unknown]
  - Hepatitis C [Unknown]

NARRATIVE: CASE EVENT DATE: 20180313
